FAERS Safety Report 17903841 (Version 1)
Quarter: 2020Q2

REPORT INFORMATION
  Report Type: Spontaneous
  Country: AU (occurrence: AU)
  Receive Date: 20200617
  Receipt Date: 20200617
  Transmission Date: 20200714
  Serious: Yes (Life-Threatening, Hospitalization)
  Sender: FDA-Public Use
  Company Number: AU-STRIDES ARCOLAB LIMITED-2020SP007039

PATIENT
  Age: 45 Year
  Sex: Female

DRUGS (5)
  1. ZOLPIDEM [Suspect]
     Active Substance: ZOLPIDEM TARTRATE
     Indication: PRODUCT USED FOR UNKNOWN INDICATION
     Dosage: 20 MILLIGRAM
     Route: 048
  2. INSULIN GLARGINE [Suspect]
     Active Substance: INSULIN GLARGINE
     Indication: TYPE 1 DIABETES MELLITUS
     Dosage: 4050 UNITS OF HIGH CONCENTRATION (9 PENS OF 1.5ML ATAT 300 UNITS/ML)
     Route: 058
  3. TEMAZEPAM. [Suspect]
     Active Substance: TEMAZEPAM
     Indication: PRODUCT USED FOR UNKNOWN INDICATION
     Dosage: 40 MILLIGRAM
     Route: 048
  4. INSULIN LISPRO [Suspect]
     Active Substance: INSULIN LISPRO
     Indication: TYPE 1 DIABETES MELLITUS
     Dosage: 300 UNITS (1 PEN OF 3ML OF 100 UNITS/ML)
     Route: 058
  5. INSULIN LISPRO [Suspect]
     Active Substance: INSULIN LISPRO
     Dosage: UNK, CONTINUOUS SUBCUTANEOUS INSULIN INFUSION (INSULIN LISPRO, VIA A MEDTRONIC INSULIN PUMP DEVICE)
     Route: 058

REACTIONS (4)
  - Nausea [Unknown]
  - Hypoglycaemia [Unknown]
  - Suicidal ideation [Unknown]
  - Depressed level of consciousness [Recovered/Resolved]
